FAERS Safety Report 20088045 (Version 2)
Quarter: 2021Q4

REPORT INFORMATION
  Report Type: Spontaneous
  Country: US (occurrence: US)
  Receive Date: 20211118
  Receipt Date: 20211222
  Transmission Date: 20220303
  Serious: Yes (Other)
  Sender: FDA-Public Use
  Company Number: US-BAYER-2021A251850

PATIENT
  Age: 60 Year
  Sex: Male

DRUGS (7)
  1. JIVI [Suspect]
     Active Substance: DAMOCTOCOG ALFA PEGOL
     Dosage: 3000 IU, PRN
     Route: 042
  2. JIVI [Suspect]
     Active Substance: DAMOCTOCOG ALFA PEGOL
     Dosage: 1 DF, ONCE; FOR BLOOD IN URINE
     Route: 042
     Dates: start: 20211112, end: 20211112
  3. JIVI [Suspect]
     Active Substance: DAMOCTOCOG ALFA PEGOL
     Dosage: 1 DF, ONCE; FOR RIGHT ELBOW BLEED
     Route: 042
     Dates: start: 20211107, end: 20211107
  4. JIVI [Suspect]
     Active Substance: DAMOCTOCOG ALFA PEGOL
     Dosage: 2 DF; FOR RIGHT ANKLE BLEED, SECOND DOSE GIVEN 48 HOURS AFTER 1ST DOSE
     Route: 042
     Dates: start: 202110
  5. JIVI [Suspect]
     Active Substance: DAMOCTOCOG ALFA PEGOL
     Dosage: 1 DF, OW
     Dates: start: 20211201
  6. JIVI [Suspect]
     Active Substance: DAMOCTOCOG ALFA PEGOL
     Dosage: 1 DF
     Dates: start: 20211209, end: 20211209
  7. JIVI [Suspect]
     Active Substance: DAMOCTOCOG ALFA PEGOL
     Dosage: 1 DF
     Dates: start: 20211214, end: 20211214

REACTIONS (5)
  - Blood urine present [Recovered/Resolved]
  - Haemarthrosis [Recovered/Resolved]
  - Haemarthrosis [None]
  - Haemarthrosis [Recovered/Resolved]
  - Haemarthrosis [Not Recovered/Not Resolved]

NARRATIVE: CASE EVENT DATE: 20211001
